FAERS Safety Report 8790845 (Version 1)
Quarter: 2012Q4

REPORT INFORMATION
  Report Type: Spontaneous
  Country: IT (occurrence: None)
  Receive Date: 20120907
  Receipt Date: 20120907
  Transmission Date: 20130627
  Serious: Yes (Other)
  Sender: FDA-Public Use
  Company Number: 2012P1055947

PATIENT
  Age: 95 Year
  Sex: Female

DRUGS (7)
  1. LANOXIN [Suspect]
     Route: 048
     Dates: start: 20120101, end: 20120810
  2. FRUSEMIDE [Concomitant]
  3. ALLOPURINOL [Concomitant]
  4. RAMIPRIL [Concomitant]
  5. GLICLAZIDE [Concomitant]
  6. ASPIRIN [Concomitant]
  7. DIBASE [Concomitant]

REACTIONS (3)
  - Atrial fibrillation [None]
  - Toxicity to various agents [None]
  - Bradycardia [None]
